FAERS Safety Report 4450442-3 (Version None)
Quarter: 2004Q3

REPORT INFORMATION
  Report Type: 
  Country: None (occurrence: None)
  Receive Date: 20040802
  Receipt Date: 20040406
  Transmission Date: 20050211
  Serious: Yes (Other)
  Sender: FDA-Public Use
  Company Number: US-SHR-04-020055

PATIENT
  Age: 69 Year
  Sex: Male
  Weight: 70.3 kg

DRUGS (4)
  1. MAGNEVIST [Suspect]
     Indication: ANGIOGRAM
     Dosage: 20 MI, 1 DOSE, INTRAVENOUS
     Route: 042
     Dates: start: 20040113, end: 20040113
  2. GLYBURIDE [Concomitant]
  3. NEXIUM [Concomitant]
  4. METOPROLOL TARTRATE [Concomitant]

REACTIONS (5)
  - BLOOD PRESSURE DECREASED [None]
  - CHEST PAIN [None]
  - COMA [None]
  - DIZZINESS [None]
  - PARAESTHESIA [None]
